FAERS Safety Report 15345669 (Version 1)
Quarter: 2018Q3

REPORT INFORMATION
  Report Type: Spontaneous
  Country: US (occurrence: US)
  Receive Date: 20180904
  Receipt Date: 20180904
  Transmission Date: 20181010
  Serious: No
  Sender: FDA-Public Use
  Company Number: US-TEVA-2018-US-921848

PATIENT
  Age: 70 Year
  Sex: Female

DRUGS (1)
  1. HYDROXOCOBALAMIN [Suspect]
     Active Substance: HYDROXOCOBALAMIN
     Indication: MEAN ARTERIAL PRESSURE DECREASED
     Route: 042

REACTIONS (1)
  - Chromaturia [Unknown]
